FAERS Safety Report 6308728-3 (Version None)
Quarter: 2009Q3

REPORT INFORMATION
  Report Type: 
  Country: None (occurrence: None)
  Receive Date: 20090813
  Receipt Date: 20080617
  Transmission Date: 20100115
  Serious: Yes (Hospitalization)
  Sender: FDA-Public Use
  Company Number: US-ALLERGAN-0804093US

PATIENT
  Age: 93 Year
  Sex: Female
  Weight: 56.236 kg

DRUGS (9)
  1. COMBIGAN [Suspect]
     Indication: OPEN ANGLE GLAUCOMA
     Dosage: 1 GTT, BID
     Route: 047
     Dates: start: 20080205
  2. DETROL LA [Suspect]
     Indication: INCONTINENCE
     Dosage: UNK, QD
     Route: 048
  3. LUMIGAN [Concomitant]
     Indication: GLAUCOMA
     Dates: start: 20060101
  4. PILOCARPINE HYDROCHLORIDE [Concomitant]
     Indication: DRUG USE FOR UNKNOWN INDICATION
  5. ZOLOFT [Concomitant]
     Indication: DEPRESSION
     Dosage: UNK, QD
     Route: 048
  6. SPIRONOLACTONE [Concomitant]
     Indication: DRUG USE FOR UNKNOWN INDICATION
  7. CARTIA XT [Concomitant]
     Indication: HYPERTENSION
     Dosage: UNK, QD
     Route: 048
  8. COUMADIN [Concomitant]
     Indication: ARTERIOSCLEROSIS
     Dosage: UNK, QD
     Route: 048
  9. XALATAN [Concomitant]
     Indication: GLAUCOMA
     Dosage: 1 GTT, QHS
     Route: 047
     Dates: start: 20000101

REACTIONS (3)
  - DIZZINESS [None]
  - FALL [None]
  - PELVIC FRACTURE [None]
